FAERS Safety Report 20016961 (Version 7)
Quarter: 2022Q1

REPORT INFORMATION
  Report Type: Report from Study
  Country: US (occurrence: US)
  Receive Date: 20211030
  Receipt Date: 20220311
  Transmission Date: 20220423
  Serious: Yes (Hospitalization, Other)
  Sender: FDA-Public Use
  Company Number: US-NOVARTISTESTPH-NVSC2021US248047

PATIENT
  Sex: Female

DRUGS (1)
  1. TABRECTA [Suspect]
     Active Substance: CAPMATINIB
     Indication: Lung neoplasm malignant
     Dosage: 200 MG, BID
     Route: 048
     Dates: start: 20210830

REACTIONS (16)
  - Amnesia [Recovering/Resolving]
  - Coordination abnormal [Recovering/Resolving]
  - White matter lesion [Unknown]
  - Fluid retention [Unknown]
  - Joint swelling [Unknown]
  - Muscle spasms [Unknown]
  - Pain [Unknown]
  - Sciatica [Unknown]
  - Pain in extremity [Unknown]
  - Gait disturbance [Unknown]
  - Nerve compression [Unknown]
  - Swelling [Unknown]
  - Headache [Unknown]
  - Fatigue [Not Recovered/Not Resolved]
  - Decreased appetite [Unknown]
  - Product supply issue [Unknown]
